FAERS Safety Report 9232986 (Version 1)
Quarter: 2013Q1

REPORT INFORMATION
  Report Type: Spontaneous
  Country: US (occurrence: None)
  Receive Date: 20121031
  Receipt Date: 20121031
  Transmission Date: 20140127
  Serious: No
  Sender: FDA-Public Use
  Company Number: PHEH2012US012376

PATIENT
  Age: 58 Year
  Sex: Male

DRUGS (5)
  1. GILENYA (FTY) CAPSULES 0.5MG [Suspect]
     Route: 048
  2. KLONOPIN (CLONAZEPAM) TABLET 0.5MG [Concomitant]
  3. SIMVASTATIN (SIMVASTATIN) TABLET, 40MG [Concomitant]
  4. VITAMIN D (ERGOCALCIFEROL) 5000 U [Concomitant]
  5. VITAMIN B NOS (VITAMIN B NOS) CAPSULE [Concomitant]

REACTIONS (3)
  - Bowel movement irregularity [None]
  - Ocular hyperaemia [None]
  - Constipation [None]
